FAERS Safety Report 6910368-X (Version None)
Quarter: 2010Q3

REPORT INFORMATION
  Report Type: 
  Country: None (occurrence: None)
  Receive Date: 20100806
  Receipt Date: 20100728
  Transmission Date: 20110219
  Serious: Yes (Hospitalization, Other)
  Sender: FDA-Public Use
  Company Number: FR-ASTRAZENECA-2010SE28991

PATIENT
  Age: 69 Year
  Sex: Male
  Weight: 63 kg

DRUGS (2)
  1. ZESTORETIC [Suspect]
     Indication: HYPERTENSION
     Dosage: 20+12.5 MG/DAY
     Route: 048
     Dates: start: 19950101, end: 20100617
  2. AMLOR [Suspect]
     Indication: HYPERTENSION
     Route: 048
     Dates: start: 19950101, end: 20100617

REACTIONS (1)
  - TOXIC SKIN ERUPTION [None]
